FAERS Safety Report 24107164 (Version 1)
Quarter: 2024Q3

REPORT INFORMATION
  Report Type: Spontaneous
  Country: US (occurrence: US)
  Receive Date: 20240718
  Receipt Date: 20240718
  Transmission Date: 20241017
  Serious: Yes (Other)
  Sender: BRISTOL MYERS SQUIBB
  Company Number: US-BRISTOL-MYERS SQUIBB COMPANY-2024-112672

PATIENT
  Age: 44 Year
  Sex: Female

DRUGS (2)
  1. ZEPOSIA [Suspect]
     Active Substance: OZANIMOD HYDROCHLORIDE
     Indication: Multiple sclerosis
     Dosage: FOR 4 DAYS 7 DAY STARTER PACK
     Route: 048
     Dates: start: 202407
  2. ZEPOSIA [Suspect]
     Active Substance: OZANIMOD HYDROCHLORIDE
     Dosage: FOR 3DAYS 7 DAY STARTER PACK
     Route: 048
     Dates: start: 202407

REACTIONS (1)
  - Brain neoplasm [Unknown]
